FAERS Safety Report 9053674 (Version 1)
Quarter: 2013Q1

REPORT INFORMATION
  Report Type: Spontaneous
  Country: US (occurrence: US)
  Receive Date: 20130208
  Receipt Date: 20130208
  Transmission Date: 20140127
  Serious: Yes (Other)
  Sender: FDA-Public Use
  Company Number: US-JNJFOC-20130116019

PATIENT
  Age: 67 None
  Sex: Female
  Weight: 88.45 kg

DRUGS (18)
  1. XARELTO [Suspect]
     Indication: CEREBROVASCULAR ACCIDENT PROPHYLAXIS
     Route: 048
     Dates: start: 20121207, end: 20130124
  2. XARELTO [Suspect]
     Indication: ATRIAL FIBRILLATION
     Route: 048
     Dates: start: 20121207, end: 20130124
  3. XARELTO [Suspect]
     Indication: THROMBOSIS
     Route: 048
     Dates: start: 20121207, end: 20130124
  4. CYMBALTA [Suspect]
     Indication: MUSCLE DISORDER
     Route: 048
  5. CYMBALTA [Suspect]
     Indication: MUSCLE DISORDER
     Route: 048
     Dates: start: 2012
  6. CYMBALTA [Suspect]
     Indication: MUSCLE DISORDER
     Route: 048
     Dates: start: 201211, end: 2012
  7. CYMBALTA [Suspect]
     Indication: PAIN
     Route: 048
  8. CYMBALTA [Suspect]
     Indication: PAIN
     Route: 048
     Dates: start: 2012
  9. CYMBALTA [Suspect]
     Indication: PAIN
     Route: 048
     Dates: start: 201211, end: 2012
  10. CYMBALTA [Suspect]
     Indication: SCIATICA
     Route: 048
     Dates: start: 201211, end: 2012
  11. CYMBALTA [Suspect]
     Indication: SCIATICA
     Route: 048
     Dates: start: 2012
  12. CYMBALTA [Suspect]
     Indication: SCIATICA
     Route: 048
  13. ESOMEPRAZOLE MAGNESIUM [Concomitant]
     Indication: GASTROOESOPHAGEAL REFLUX DISEASE
     Route: 048
  14. LOSARTAN [Concomitant]
     Indication: BLOOD PRESSURE
     Route: 048
  15. METOPROLOL [Concomitant]
     Indication: BLOOD PRESSURE
     Route: 048
     Dates: start: 201211
  16. SIMVASTATIN [Concomitant]
     Indication: BLOOD CHOLESTEROL
     Route: 048
  17. AMLODIPINE [Concomitant]
     Indication: BLOOD PRESSURE
     Route: 048
     Dates: end: 20130107
  18. DILTIAZEM [Concomitant]
     Indication: ARRHYTHMIA PROPHYLAXIS
     Route: 048
     Dates: start: 201212

REACTIONS (5)
  - Syncope [Recovered/Resolved]
  - Wrist fracture [Recovered/Resolved]
  - Drug ineffective [Not Recovered/Not Resolved]
  - Pain [Unknown]
  - Sciatica [Unknown]
